FAERS Safety Report 15613536 (Version 2)
Quarter: 2019Q1

REPORT INFORMATION
  Report Type: Spontaneous
  Country: DE (occurrence: DE)
  Receive Date: 20181113
  Receipt Date: 20190305
  Transmission Date: 20190417
  Serious: Yes (Hospitalization)
  Sender: FDA-Public Use
  Company Number: DE-GUERBET-DE-20180127

PATIENT
  Age: 57 Year
  Sex: Female
  Weight: 64 kg

DRUGS (4)
  1. ENBREL [Concomitant]
     Active Substance: ETANERCEPT
     Indication: PSORIATIC ARTHROPATHY
     Route: 030
  2. HYDROCORTISONE. [Concomitant]
     Active Substance: HYDROCORTISONE
     Indication: PRODUCT USED FOR UNKNOWN INDICATION
     Dosage: 15 MG - 10 MG - 0
     Route: 065
  3. DOTAREM [Suspect]
     Active Substance: GADOTERATE MEGLUMINE
     Indication: NUCLEAR MAGNETIC RESONANCE IMAGING BRAIN
     Route: 042
     Dates: start: 20181004, end: 20181004
  4. ARCOXIA [Concomitant]
     Active Substance: ETORICOXIB
     Indication: PRODUCT USED FOR UNKNOWN INDICATION
     Dosage: 90 MG DAILY
     Route: 065

REACTIONS (14)
  - Headache [Unknown]
  - Nervous system disorder [Not Recovered/Not Resolved]
  - Gait disturbance [Unknown]
  - Mental impairment [Unknown]
  - Adrenocortical insufficiency acute [Unknown]
  - Aphasia [Unknown]
  - Visual impairment [Not Recovered/Not Resolved]
  - Burning sensation [Not Recovered/Not Resolved]
  - Disease progression [Unknown]
  - Eye irritation [Not Recovered/Not Resolved]
  - Hypokinesia [Not Recovered/Not Resolved]
  - Sleep disorder [Unknown]
  - Dizziness [Not Recovered/Not Resolved]
  - Contrast media reaction [Not Recovered/Not Resolved]

NARRATIVE: CASE EVENT DATE: 20181004
